FAERS Safety Report 21407972 (Version 1)
Quarter: 2022Q4

REPORT INFORMATION
  Report Type: Spontaneous
  Country: US (occurrence: US)
  Receive Date: 20221004
  Receipt Date: 20221004
  Transmission Date: 20230113
  Serious: No
  Sender: FDA-Public Use
  Company Number: US-AMGEN-USASP2022168958

PATIENT

DRUGS (1)
  1. PROCRIT [Suspect]
     Active Substance: ERYTHROPOIETIN
     Indication: Haemoglobin decreased
     Dosage: UNK
     Route: 065
     Dates: start: 20220912

REACTIONS (5)
  - Hypoaesthesia [Unknown]
  - Pain in extremity [Unknown]
  - Headache [Unknown]
  - Dysphagia [Unknown]
  - Fall [Unknown]

NARRATIVE: CASE EVENT DATE: 20220901
